FAERS Safety Report 5240393-9 (Version None)
Quarter: 2007Q1

REPORT INFORMATION
  Report Type: 
  Country: None (occurrence: None)
  Receive Date: 20061208
  Receipt Date: 20051028
  Transmission Date: 20070707
  Serious: Yes (Other)
  Sender: FDA-Public Use
  Company Number: 2005UW14258

PATIENT
  Age: 72 Year
  Weight: 108.86 kg

DRUGS (4)
  1. CRESTOR [Suspect]
     Indication: BLOOD CHOLESTEROL INCREASED
     Dosage: 10 MG PO
     Route: 048
     Dates: end: 20050601
  2. CRESTOR [Suspect]
     Indication: BLOOD CHOLESTEROL INCREASED
     Dosage: 10 MG PO
     Route: 048
     Dates: start: 20050912
  3. TOPROL-XL [Concomitant]
  4. ASPIRIN [Concomitant]

REACTIONS (1)
  - SKIN ODOUR ABNORMAL [None]
